FAERS Safety Report 5054956-7 (Version None)
Quarter: 2006Q3

REPORT INFORMATION
  Report Type: 
  Country: None (occurrence: None)
  Receive Date: 20060719
  Receipt Date: 20060525
  Transmission Date: 20061208
  Serious: Yes (Other)
  Sender: FDA-Public Use
  Company Number: 2006UW10270

PATIENT
  Age: 42 Year
  Sex: Male
  Weight: 90.9 kg

DRUGS (4)
  1. SEROQUEL [Suspect]
     Route: 048
  2. MORPHINE [Concomitant]
     Indication: BACK PAIN
     Dates: start: 20060301, end: 20060601
  3. XANAX [Concomitant]
     Indication: ANXIETY
     Route: 048
     Dates: start: 20050101
  4. PROZAC [Concomitant]
     Indication: DEPRESSION
     Route: 048
     Dates: start: 20050101

REACTIONS (4)
  - ASTHENIA [None]
  - FATIGUE [None]
  - SYNCOPE [None]
  - VERTIGO [None]
